FAERS Safety Report 7844896-X (Version None)
Quarter: 2011Q4

REPORT INFORMATION
  Report Type: 
  Country: None (occurrence: None)
  Receive Date: 20111019
  Receipt Date: 20111004
  Transmission Date: 20120403
  Serious: Yes (Hospitalization, Other)
  Sender: FDA-Public Use
  Company Number: 2011SP047108

PATIENT
  Age: 27 Year
  Sex: Female
  Weight: 113.3993 kg

DRUGS (8)
  1. LUXIQ [Concomitant]
  2. PROTOPIC [Concomitant]
  3. TRIAMCINOLONE [Concomitant]
  4. HUMIRA [Suspect]
     Indication: PSORIASIS
     Dosage: 40 MG;SC
     Route: 059
     Dates: start: 20100401, end: 20110401
  5. DOVONEX [Concomitant]
  6. ENBREL [Concomitant]
  7. TEMODAR [Suspect]
     Indication: PRODUCT USED FOR UNKNOWN INDICATION
     Dates: start: 20110701
  8. TEMODAR [Suspect]
     Indication: PRODUCT USED FOR UNKNOWN INDICATION
     Dates: start: 20110801

REACTIONS (21)
  - NASOPHARYNGITIS [None]
  - METASTASES TO LUNG [None]
  - ALOPECIA [None]
  - MOOD SWINGS [None]
  - METASTASES TO BLADDER [None]
  - SQUAMOUS CELL CARCINOMA [None]
  - PSORIASIS [None]
  - DIARRHOEA [None]
  - OVARIAN CYST [None]
  - FEELING ABNORMAL [None]
  - CONSTIPATION [None]
  - WEIGHT DECREASED [None]
  - DISEASE RECURRENCE [None]
  - FATIGUE [None]
  - ASTHENIA [None]
  - METASTATIC MALIGNANT MELANOMA [None]
  - VAGINITIS BACTERIAL [None]
  - HEPATITIS [None]
  - HOT FLUSH [None]
  - PULMONARY THROMBOSIS [None]
  - METASTASES TO LYMPH NODES [None]
